FAERS Safety Report 8386925-3 (Version None)
Quarter: 2012Q2

REPORT INFORMATION
  Report Type: 
  Country: None (occurrence: None)
  Receive Date: 20120525
  Receipt Date: 20120517
  Transmission Date: 20120825
  Serious: Yes (Hospitalization)
  Sender: FDA-Public Use
  Company Number: US-INCYTE CORPORATION-2012IN000207

PATIENT
  Sex: Female

DRUGS (12)
  1. JAKAFI [Suspect]
     Dosage: 10 MG, BID
     Route: 048
     Dates: start: 20120201
  2. PROTONIX [Concomitant]
     Dosage: 40 MG, QD
  3. LUNESTA [Concomitant]
     Dosage: 3 MG, QD (QHS)
  4. CALCIUM CARBONATE [Concomitant]
     Dosage: 500 MG, QD
  5. EXCEDRIN (MIGRAINE) [Concomitant]
     Indication: HEADACHE
     Dosage: UNK, PRN
  6. L-LYSINE [Concomitant]
     Dosage: 500 MG, QD
  7. JAKAFI [Suspect]
     Indication: MYELOFIBROSIS
     Dosage: 20 MG, BID
     Route: 048
     Dates: start: 20120114, end: 20120201
  8. CELEBREX [Concomitant]
     Dosage: 200 MG, QD
  9. SYNTHROID [Concomitant]
     Dosage: 0.1 MG, QD
  10. ASPIRIN [Concomitant]
     Dosage: 81 MG, QD
  11. OXYCODONE HCL AND ACETAMINOPHEN [Concomitant]
     Indication: MUSCULOSKELETAL CHEST PAIN
     Dosage: 5/325 MG, 1 TAB PM
  12. NIACIN [Concomitant]
     Dosage: 500 MG, BID

REACTIONS (2)
  - KIDNEY INFECTION [None]
  - HAEMOGLOBIN DECREASED [None]
